FAERS Safety Report 5613498-8 (Version None)
Quarter: 2008Q1

REPORT INFORMATION
  Report Type: 
  Country: None (occurrence: None)
  Receive Date: 20080129
  Receipt Date: 20080115
  Transmission Date: 20080703
  Serious: Yes (Hospitalization)
  Sender: FDA-Public Use
  Company Number: US021855

PATIENT
  Sex: Female

DRUGS (2)
  1. MODASOMIL [Suspect]
     Indication: HYPERSOMNIA
     Dosage: 200 MG ORAL
     Route: 048
     Dates: end: 20071013
  2. MODASOMIL [Suspect]
     Indication: HYPERSOMNIA
     Dosage: 400 MG ORAL
     Route: 048
     Dates: start: 20071014, end: 20071019

REACTIONS (1)
  - DYSKINESIA [None]
